FAERS Safety Report 7904290-X (Version None)
Quarter: 2011Q4

REPORT INFORMATION
  Report Type: 
  Country: None (occurrence: None)
  Receive Date: 20111109
  Receipt Date: 20111031
  Transmission Date: 20120403
  Serious: Yes (Other)
  Sender: FDA-Public Use
  Company Number: US-ASTRAZENECA-2011SE41448

PATIENT
  Age: 68 Year
  Sex: Female

DRUGS (1)
  1. NEXIUM [Suspect]
     Route: 048

REACTIONS (13)
  - PAIN [None]
  - REGURGITATION [None]
  - EMPHYSEMA [None]
  - INSOMNIA [None]
  - DIABETES MELLITUS [None]
  - HIATUS HERNIA [None]
  - BACK INJURY [None]
  - BURNING SENSATION [None]
  - DRUG DOSE OMISSION [None]
  - STAPHYLOCOCCAL INFECTION [None]
  - FURUNCLE [None]
  - RESPIRATORY DISORDER [None]
  - ANAESTHETIC COMPLICATION [None]
